FAERS Safety Report 21639402 (Version 1)
Quarter: 2022Q4

REPORT INFORMATION
  Report Type: Spontaneous
  Country: US (occurrence: US)
  Receive Date: 20221124
  Receipt Date: 20221124
  Transmission Date: 20230113
  Serious: Yes (Hospitalization, Other)
  Sender: FDA-Public Use
  Company Number: US-BRISTOL-MYERS SQUIBB COMPANY-2022-141325

PATIENT
  Age: 82 Year
  Sex: Female

DRUGS (2)
  1. OPDIVO [Suspect]
     Active Substance: NIVOLUMAB
     Indication: Neuroendocrine tumour
     Dosage: FREQUENCY: EVERY 2 WEEKS
     Route: 042
     Dates: end: 20221025
  2. YERVOY [Suspect]
     Active Substance: IPILIMUMAB
     Indication: Neuroendocrine tumour
     Dosage: FREQUENCY: EVERY 6 WEEKS
     Route: 042
     Dates: end: 20220925

REACTIONS (2)
  - Malignant neoplasm progression [Unknown]
  - Off label use [Unknown]
